FAERS Safety Report 10066020 (Version 4)
Quarter: 2014Q3

REPORT INFORMATION
  Report Type: Spontaneous
  Country: AU (occurrence: AU)
  Receive Date: 20140408
  Receipt Date: 20140909
  Transmission Date: 20150326
  Serious: Yes (Other)
  Sender: FDA-Public Use
  Company Number: ALCN2014AU002130

PATIENT
  Age: 77 Year

DRUGS (13)
  1. BETADINE [Concomitant]
     Active Substance: POVIDONE-IODINE
     Dosage: 1 UNK, UNK
     Route: 047
     Dates: start: 20140324, end: 20140324
  2. DUODART [Concomitant]
     Active Substance: DUTASTERIDE\TAMSULOSIN
     Dosage: UNK
  3. BSS [Suspect]
     Active Substance: CALCIUM CHLORIDE\MAGNESIUM CHLORIDE\POTASSIUM CHLORIDE\SODIUM ACETATE\SODIUM CHLORIDE\SODIUM CITRATE
     Indication: INTRAOCULAR LENS IMPLANT
     Dosage: 500 ML, UNK
     Route: 031
     Dates: start: 20140324, end: 20140324
  4. AMARYL [Concomitant]
     Active Substance: GLIMEPIRIDE
     Dosage: UNK
  5. COVERSYL                                /BEL/ [Concomitant]
     Dosage: UNK
  6. TROPICAMIDE. [Suspect]
     Active Substance: TROPICAMIDE
     Dosage: UNK
     Route: 047
     Dates: start: 20140324, end: 20140324
  7. ACULAR [Concomitant]
     Active Substance: KETOROLAC TROMETHAMINE
     Dosage: UNK
     Route: 047
     Dates: start: 20140324, end: 20140324
  8. PHENYLEPHRINE HCL [Suspect]
     Active Substance: PHENYLEPHRINE HYDROCHLORIDE
     Dosage: UNK
     Route: 047
     Dates: start: 20140324, end: 20140324
  9. OCUFLOX//LOMEFLOXACIN HYDROCHLORIDE [Concomitant]
     Dosage: UNK
     Route: 047
     Dates: start: 20140324, end: 20140324
  10. TETRACAINE STERI-UNITS [Suspect]
     Active Substance: TETRACAINE\TETRACAINE HYDROCHLORIDE
     Dosage: UNK
     Route: 047
     Dates: start: 20140324, end: 20140324
  11. EPINEPHRINE. [Concomitant]
     Active Substance: EPINEPHRINE
  12. ATORVASTATIN [Concomitant]
     Active Substance: ATORVASTATIN
     Dosage: UNK
  13. ZYLOPRIM [Concomitant]
     Active Substance: ALLOPURINOL
     Dosage: UNK

REACTIONS (2)
  - Off label use [Unknown]
  - Toxic anterior segment syndrome [Recovering/Resolving]

NARRATIVE: CASE EVENT DATE: 20140324
